FAERS Safety Report 5746390-9 (Version None)
Quarter: 2008Q2

REPORT INFORMATION
  Report Type: 
  Country: None (occurrence: None)
  Receive Date: 20080520
  Receipt Date: 20080520
  Transmission Date: 20081010
  Serious: Yes (Death)
  Sender: FDA-Public Use
  Company Number: None

PATIENT
  Sex: Male
  Weight: 72.5755 kg

DRUGS (1)
  1. ZYPREXA [Suspect]
     Indication: DEPRESSION
     Dosage: 5 OR 10 MG ??
     Dates: start: 20030928, end: 20031004

REACTIONS (4)
  - ANXIETY [None]
  - COMPLETED SUICIDE [None]
  - NO THERAPEUTIC RESPONSE [None]
  - RESTLESSNESS [None]
